FAERS Safety Report 12140485 (Version 1)
Quarter: 2016Q1

REPORT INFORMATION
  Report Type: Report from Study
  Country: US (occurrence: US)
  Receive Date: 20160303
  Receipt Date: 20160303
  Transmission Date: 20160526
  Serious: Yes (Other)
  Sender: FDA-Public Use
  Company Number: US-AMGEN-USASL2016010359

PATIENT
  Age: 78 Year
  Sex: Female

DRUGS (1)
  1. REPATHA [Suspect]
     Active Substance: EVOLOCUMAB
     Indication: DYSLIPIDAEMIA
     Dosage: 140 MG, Q2WK
     Route: 058
     Dates: start: 20151201

REACTIONS (4)
  - Cystitis [Recovered/Resolved]
  - Escherichia urinary tract infection [Recovered/Resolved]
  - Low density lipoprotein decreased [Unknown]
  - Culture urine positive [Recovered/Resolved]

NARRATIVE: CASE EVENT DATE: 20151223
